FAERS Safety Report 10513877 (Version 1)
Quarter: 2014Q4

REPORT INFORMATION
  Report Type: Spontaneous
  Country: NL (occurrence: NL)
  Receive Date: 20141013
  Receipt Date: 20141013
  Transmission Date: 20150528
  Serious: Yes (Hospitalization)
  Sender: FDA-Public Use
  Company Number: NL-009507513-1410NLD005079

PATIENT
  Age: 46 Year
  Sex: Male

DRUGS (8)
  1. LEVOTHYROXINE SODIUM. [Concomitant]
     Active Substance: LEVOTHYROXINE SODIUM
     Dosage: ONCE A DAY 1 PIECE (150MCG)
     Route: 048
     Dates: start: 2011
  2. ASCAL CARDIO [Concomitant]
     Active Substance: CARBASALATE
     Dosage: ONCE A DAY 1 PIECE (100MG)
     Route: 048
     Dates: start: 20140123
  3. INSULIN DETEMIR [Concomitant]
     Active Substance: INSULIN DETEMIR
     Dosage: EXTRA INFO: ACCORDING TO SCHEME; STRENGTH REPORTED AS 100E/ML
     Route: 058
     Dates: start: 2009
  4. INSULIN ASPART [Concomitant]
     Active Substance: INSULIN ASPART
     Dosage: EXTRA INFO: ACCORDING TO SCHEME; STRENGTH REPORTED AS 100E/ML
     Route: 058
     Dates: start: 2004
  5. DICLOFENAC SODIUM. [Concomitant]
     Active Substance: DICLOFENAC SODIUM
     Dosage: 3 TIMES A DAY 1 PIECE, EXTRA INFO: USE SINCE 2007. ALWAYS A FEW DAYS SUCCESSIVELY
     Route: 048
     Dates: start: 20140106, end: 20140312
  6. SIMVASTATIN. [Suspect]
     Active Substance: SIMVASTATIN
     Indication: PRODUCT USED FOR UNKNOWN INDICATION
     Dosage: ONCE A DAY 1 PIECE (20MG)
     Route: 048
     Dates: start: 2003, end: 20140123
  7. OMEPRAZOLE. [Concomitant]
     Active Substance: OMEPRAZOLE
     Dosage: ONCE A DAY 1 PIECE
     Route: 048
     Dates: start: 20140123
  8. THYRAX DUOTAB [Concomitant]
     Active Substance: LEVOTHYROXINE
     Dosage: ONCE A DAY 2 PIECES (0.5MCG)
     Route: 048
     Dates: start: 2009

REACTIONS (3)
  - Vascular occlusion [Recovered/Resolved]
  - Lung infiltration [Recovered/Resolved]
  - Blood creatine phosphokinase increased [Recovered/Resolved]

NARRATIVE: CASE EVENT DATE: 20140123
